FAERS Safety Report 6346239-X (Version None)
Quarter: 2009Q3

REPORT INFORMATION
  Report Type: 
  Country: None (occurrence: None)
  Receive Date: 20090909
  Receipt Date: 20090901
  Transmission Date: 20100115
  Serious: Yes (Other)
  Sender: FDA-Public Use
  Company Number: PHHY2009AR37007

PATIENT
  Sex: Female

DRUGS (1)
  1. ACLASTA [Suspect]
     Dosage: UNK
     Dates: start: 20080522

REACTIONS (4)
  - ABDOMINAL DISCOMFORT [None]
  - OSTEOARTHRITIS [None]
  - PAIN [None]
  - SPINAL DISORDER [None]
